FAERS Safety Report 7802042-2 (Version None)
Quarter: 2011Q4

REPORT INFORMATION
  Report Type: 
  Country: None (occurrence: None)
  Receive Date: 20111007
  Receipt Date: 20110930
  Transmission Date: 20120403
  Serious: Yes (Life-Threatening, Hospitalization)
  Sender: FDA-Public Use
  Company Number: DK-PFIZER INC-2008072907

PATIENT
  Age: 34 Year
  Sex: Female
  Weight: 65 kg

DRUGS (10)
  1. PANTOPRAZOLE SODIUM [Interacting]
     Dosage: UNK
     Dates: start: 20080122, end: 20080125
  2. VOGALENE [Interacting]
     Dosage: UNK
  3. ONDANSETRON HCL [Interacting]
     Dosage: UNK
     Dates: start: 20080122, end: 20080125
  4. ETOPOSIDE [Interacting]
  5. DEXAMETHASONE [Interacting]
     Dosage: UNK
  6. ALLOPURINOL [Interacting]
     Dosage: UNK
     Route: 048
     Dates: end: 20080122
  7. CYTARABINE [Suspect]
  8. NOXAFIL [Interacting]
     Indication: HEPATOSPLENIC CANDIDIASIS
     Dosage: 200 MG, 4X/DAY
     Route: 048
     Dates: start: 20071019, end: 20080125
  9. POTASSIUM CHLORIDE [Interacting]
     Dosage: 750 MG, UNK
     Route: 048
  10. ACYCLOVIR [Interacting]
     Dosage: UNK

REACTIONS (3)
  - SINOATRIAL BLOCK [None]
  - ATRIOVENTRICULAR BLOCK SECOND DEGREE [None]
  - DRUG INTERACTION [None]
